FAERS Safety Report 7498257-6 (Version None)
Quarter: 2011Q2

REPORT INFORMATION
  Report Type: 
  Country: None (occurrence: None)
  Receive Date: 20110524
  Receipt Date: 20110517
  Transmission Date: 20111010
  Serious: No
  Sender: FDA-Public Use
  Company Number: US-BIOGENIDEC-2011BI018729

PATIENT
  Age: 57 Year
  Sex: Female

DRUGS (1)
  1. TYSABRI [Suspect]
     Indication: MULTIPLE SCLEROSIS
     Route: 042
     Dates: start: 20110302

REACTIONS (9)
  - HOT FLUSH [None]
  - ABNORMAL DREAMS [None]
  - ASTHENIA [None]
  - MUSCLE SPASMS [None]
  - PAIN IN EXTREMITY [None]
  - MUSCLE SPASTICITY [None]
  - EMOTIONAL DISORDER [None]
  - FATIGUE [None]
  - NIGHT SWEATS [None]
